FAERS Safety Report 8194933-0 (Version None)
Quarter: 2012Q1

REPORT INFORMATION
  Report Type: 
  Country: None (occurrence: None)
  Receive Date: 20120308
  Receipt Date: 20110707
  Transmission Date: 20120608
  Serious: No
  Sender: FDA-Public Use
  Company Number: US-GLAXOSMITHKLINE-A0935294A

PATIENT
  Age: 58 Year
  Sex: Male

DRUGS (1)
  1. NICORETTE (MINT) [Suspect]
     Indication: NICOTINE DEPENDENCE

REACTIONS (9)
  - PERFORMANCE STATUS DECREASED [None]
  - INTENTIONAL DRUG MISUSE [None]
  - PAIN IN EXTREMITY [None]
  - NICOTINE DEPENDENCE [None]
  - PANIC REACTION [None]
  - PAIN [None]
  - DRUG ADMINISTRATION ERROR [None]
  - INSOMNIA [None]
  - POOR QUALITY SLEEP [None]
